FAERS Safety Report 17899070 (Version 1)
Quarter: 2020Q2

REPORT INFORMATION
  Report Type: Spontaneous
  Country: DE (occurrence: DE)
  Receive Date: 20200616
  Receipt Date: 20200616
  Transmission Date: 20200714
  Serious: Yes (Hospitalization)
  Sender: FDA-Public Use
  Company Number: DE-TEVA-2020-DE-1247802

PATIENT
  Age: 77 Year
  Sex: Female

DRUGS (6)
  1. CLONIDIN RATIOPHARM [Suspect]
     Active Substance: CLONIDINE HYDROCHLORIDE
     Indication: HYPERTENSION
     Dosage: SINCE 2-3 MONTHS, 1-0-1
     Route: 048
  2. OPIPRAMOL (OPIPRAMOL) [Concomitant]
     Active Substance: OPIPRAMOL
     Dosage: 50 MILLIGRAM DAILY;
  3. VALSARTAN DURA 160  MG [Concomitant]
     Active Substance: VALSARTAN
     Dosage: 160 MILLIGRAM DAILY; 0-0-1
  4. CLONIDIN RATIOPHARM [Suspect]
     Active Substance: CLONIDINE HYDROCHLORIDE
     Dosage: 1-0-0
     Route: 048
  5. NIFEDIPIN-AL 5 MG [NIFEDIPINE] [Concomitant]
     Active Substance: NIFEDIPINE
  6. ATORVASTATIN (ATORVASTATIN) [Concomitant]
     Active Substance: ATORVASTATIN

REACTIONS (5)
  - Dry mouth [Recovering/Resolving]
  - Gait disturbance [Not Recovered/Not Resolved]
  - Hypoaesthesia [Not Recovered/Not Resolved]
  - Pallor [Not Recovered/Not Resolved]
  - Fall [Recovered/Resolved]

NARRATIVE: CASE EVENT DATE: 2020
